FAERS Safety Report 8591645-6 (Version None)
Quarter: 2012Q3

REPORT INFORMATION
  Report Type: 
  Country: None (occurrence: None)
  Receive Date: 20120814
  Receipt Date: 20120802
  Transmission Date: 20120928
  Serious: Yes (Hospitalization, Other)
  Sender: FDA-Public Use
  Company Number: AU-CELGENEUS-008-CCAZA-12042940

PATIENT
  Sex: Female
  Weight: 55.4 kg

DRUGS (35)
  1. WHOLE BLOOD [Concomitant]
     Route: 065
     Dates: start: 20120401
  2. VANCOMYCIN [Concomitant]
     Route: 065
  3. ESOMEPRAZOLE [Concomitant]
     Dosage: 40 MILLIGRAM
     Route: 048
     Dates: start: 20120517, end: 20120518
  4. LOPERAMIDE [Concomitant]
     Indication: DIARRHOEA
     Route: 048
     Dates: start: 20120521, end: 20120521
  5. KETOTIFEN FUMARATE [Concomitant]
     Indication: RASH
  6. ACETAMINOPHEN [Concomitant]
     Indication: OSTEOARTHRITIS
     Dosage: 4 TABLET
     Route: 048
     Dates: start: 20120125
  7. CYCLICINE [Concomitant]
     Indication: NAUSEA
     Dosage: 150 MILLIGRAM
     Route: 048
     Dates: start: 20120426, end: 20120426
  8. METRONIDAZOLE [Concomitant]
     Indication: COLITIS
  9. SANDOZ PHOSPHATE [Concomitant]
     Indication: HYPOPHOSPHATAEMIA
     Route: 048
     Dates: start: 20120427, end: 20120427
  10. ENOXAPARIN SODIUM [Concomitant]
     Dosage: 40 MILLIGRAM
     Route: 058
     Dates: start: 20120613, end: 20120628
  11. LOPERAMIDE [Concomitant]
     Route: 048
     Dates: start: 20120618, end: 20120625
  12. AZACITIDINE [Suspect]
     Dosage: 75 MILLIGRAM/SQ. METER
     Route: 058
     Dates: start: 20120203, end: 20120209
  13. SLOW POTASSIUM [Concomitant]
     Dosage: 1200 MILLIGRAM
     Route: 048
     Dates: start: 20120628
  14. AZACITIDINE [Suspect]
     Dosage: 75 MILLIGRAM/SQ. METER
     Route: 058
     Dates: start: 20120413, end: 20120419
  15. POSACONAZOLE [Concomitant]
     Indication: ANTIFUNGAL PROPHYLAXIS
     Dosage: 600 MILLIGRAM
     Route: 048
     Dates: start: 20120127
  16. SLOW POTASSIUM [Concomitant]
     Dosage: 1800 MILLIGRAM
     Route: 048
     Dates: start: 20120620, end: 20120620
  17. SLOW POTASSIUM [Concomitant]
     Dosage: 5400 MILLIGRAM
     Route: 048
     Dates: start: 20120623, end: 20120627
  18. SANDOZ PHOSPHATE [Concomitant]
     Route: 048
     Dates: start: 20120518, end: 20120519
  19. SANDOZ PHOSPHATE [Concomitant]
     Route: 048
     Dates: start: 20120614, end: 20120623
  20. AZACITIDINE [Suspect]
     Dosage: 75 MILLIGRAM/SQ. METER
     Route: 058
     Dates: start: 20120511, end: 20120517
  21. AZACITIDINE [Suspect]
     Dosage: 75 MILLIGRAM/SQ. METER
     Route: 058
     Dates: start: 20120608, end: 20120614
  22. CALCIUM CARBONATE [Concomitant]
     Indication: HYPOCALCAEMIA
     Route: 048
     Dates: start: 20120428, end: 20120428
  23. ENOXAPARIN SODIUM [Concomitant]
     Dosage: 40 MILLIGRAM
     Route: 058
     Dates: start: 20120517, end: 20120521
  24. VALTREX [Concomitant]
     Indication: ANTIFUNGAL PROPHYLAXIS
     Dosage: 1000 MILLIGRAM
     Route: 048
     Dates: start: 20120127
  25. KETOTIFEN FUMARATE [Concomitant]
     Dosage: 1 MILLIGRAM
     Route: 048
     Dates: start: 20070101
  26. PRAMIN [Concomitant]
     Route: 048
     Dates: start: 20120228
  27. CALCIUM CARBONATE [Concomitant]
     Route: 048
     Dates: start: 20120519, end: 20120521
  28. METRONIDAZOLE [Concomitant]
     Dosage: 1200 MILLIGRAM
     Route: 048
     Dates: start: 20120624, end: 20120627
  29. SANDOZ PHOSPHATE [Concomitant]
     Route: 048
     Dates: start: 20120624, end: 20120626
  30. ALLOPURINOL [Concomitant]
     Indication: PROPHYLAXIS
     Dosage: 300 MILLIGRAM
     Route: 048
     Dates: start: 20120517, end: 20120517
  31. VALTREX [Concomitant]
     Dosage: 2 GRAM
     Route: 048
     Dates: start: 20120518
  32. COLOXYL C SENNA [Concomitant]
     Indication: CONSTIPATION PROPHYLAXIS
     Route: 048
     Dates: start: 20120228
  33. RANITIDINE [Concomitant]
     Dosage: 300 MILLIGRAM
     Route: 048
     Dates: start: 20120330
  34. SLOW POTASSIUM [Concomitant]
     Route: 048
     Dates: start: 20120428, end: 20120428
  35. SLOW POTASSIUM [Concomitant]
     Dosage: 1800 MILLIGRAM
     Route: 048
     Dates: start: 20120614, end: 20120614

REACTIONS (4)
  - FEBRILE NEUTROPENIA [None]
  - COLITIS [None]
  - DEHYDRATION [None]
  - HYPOTENSION [None]
